FAERS Safety Report 21637724 (Version 7)
Quarter: 2023Q4

REPORT INFORMATION
  Report Type: Spontaneous
  Country: US (occurrence: US)
  Receive Date: 20221124
  Receipt Date: 20231122
  Transmission Date: 20240110
  Serious: No
  Sender: FDA-Public Use
  Company Number: US-BRISTOL-MYERS SQUIBB COMPANY-2022-130495

PATIENT
  Age: 58 Year
  Sex: Male

DRUGS (4)
  1. REVLIMID [Suspect]
     Active Substance: LENALIDOMIDE
     Indication: Plasma cell myeloma
     Route: 048
  2. REVLIMID [Suspect]
     Active Substance: LENALIDOMIDE
     Route: 048
     Dates: start: 202209
  3. REVLIMID [Suspect]
     Active Substance: LENALIDOMIDE
     Dosage: FREQUENCY- DAILY
     Route: 048
  4. LEVAQUIN [Suspect]
     Active Substance: LEVOFLOXACIN
     Indication: Product used for unknown indication

REACTIONS (15)
  - Influenza [Unknown]
  - Fatigue [Unknown]
  - Somnolence [Unknown]
  - Skin ulcer [Unknown]
  - Constipation [Unknown]
  - Herpes zoster [Unknown]
  - Skin exfoliation [Unknown]
  - Diarrhoea [Unknown]
  - Restless legs syndrome [Unknown]
  - Head discomfort [Unknown]
  - Insomnia [Unknown]
  - Rash [Unknown]
  - Middle insomnia [Unknown]
  - Light chain analysis increased [Unknown]
  - Muscle spasms [Unknown]

NARRATIVE: CASE EVENT DATE: 20221130
